FAERS Safety Report 8223545-5 (Version None)
Quarter: 2012Q1

REPORT INFORMATION
  Report Type: 
  Country: None (occurrence: None)
  Receive Date: 20120321
  Receipt Date: 20120315
  Transmission Date: 20120608
  Serious: No
  Sender: FDA-Public Use
  Company Number: US-PFIZER INC-2012069883

PATIENT
  Sex: Female
  Weight: 53.061 kg

DRUGS (12)
  1. COUMADIN [Concomitant]
     Dosage: UNK, AS NEEDED
  2. DIGOXIN [Concomitant]
     Dosage: 0.125 MG, DAILY
  3. SIMVASTATIN [Concomitant]
     Dosage: 10 MG, DAILY
  4. REVATIO [Suspect]
     Indication: LUNG DISORDER
     Dosage: 20 MG, 3X/DAY
     Route: 048
  5. CARVEDILOL [Concomitant]
     Dosage: 3.125 MG, 2X/DAY
  6. FUROSEMIDE [Concomitant]
     Dosage: 20 MG, 2X/DAY
  7. BUSPAR [Concomitant]
     Dosage: 5 MG, 2X/DAY
  8. LISINOPRIL [Concomitant]
     Dosage: 5 MG, DAILY
  9. ATIVAN [Concomitant]
     Dosage: 0.5 MG, DAILY
  10. OMEPRAZOLE [Concomitant]
     Dosage: 40 MG, 2X/DAY
  11. ANALPRAM-HC [Concomitant]
     Dosage: UNK
     Route: 054
  12. FLUTICASONE [Concomitant]
     Dosage: 50 MG, AS NEEDED

REACTIONS (3)
  - CONTUSION [None]
  - DISCOMFORT [None]
  - FALL [None]
